FAERS Safety Report 7277316-7 (Version None)
Quarter: 2011Q1

REPORT INFORMATION
  Report Type: 
  Country: None (occurrence: None)
  Receive Date: 20110203
  Receipt Date: 20110203
  Transmission Date: 20110831
  Serious: Yes (Death, Hospitalization)
  Sender: FDA-Public Use
  Company Number: None

PATIENT
  Sex: Male

DRUGS (12)
  1. FLUOXETINE [Concomitant]
  2. TERAZOSIN [Concomitant]
  3. NITORGLYCERIN [Concomitant]
  4. ASPIRIN [Concomitant]
  5. REVLIMID [Suspect]
     Indication: RENAL AMYLOIDOSIS
     Dosage: REVLIMID 10MG #11 CAPSULES EVERY DAY ORAL
     Route: 048
     Dates: start: 20110111, end: 20110117
  6. REVLIMID [Suspect]
     Indication: WALDENSTROM'S MACROGLOBULINAEMIA
     Dosage: REVLIMID 10MG #11 CAPSULES EVERY DAY ORAL
     Route: 048
     Dates: start: 20110111, end: 20110117
  7. IRON DEXTRAN [Concomitant]
  8. OMEPRAZOLE [Concomitant]
  9. ISOSORBIDE MONONITRATE [Concomitant]
  10. METOPROLOL TARTRATE [Concomitant]
  11. SIMVASTATIN [Concomitant]
  12. ONDANSETRON [Concomitant]

REACTIONS (5)
  - MYOCARDIAL ISCHAEMIA [None]
  - RENAL IMPAIRMENT [None]
  - FATIGUE [None]
  - CARDIAC FAILURE CONGESTIVE [None]
  - CONDITION AGGRAVATED [None]
